FAERS Safety Report 21386778 (Version 1)
Quarter: 2022Q3

REPORT INFORMATION
  Report Type: Spontaneous
  Country: TR (occurrence: TR)
  Receive Date: 20220928
  Receipt Date: 20220928
  Transmission Date: 20221027
  Serious: Yes (Hospitalization)
  Sender: FDA-Public Use
  Company Number: TR-ALKEM LABORATORIES LIMITED-TR-ALKEM-2022-10734

PATIENT
  Age: 66 Month
  Sex: Female

DRUGS (1)
  1. COLCHICINE [Suspect]
     Active Substance: COLCHICINE
     Indication: Product used for unknown indication
     Dosage: 0.38 MILLIGRAM/KILOGRAM
     Route: 048

REACTIONS (2)
  - Toxicity to various agents [Recovered/Resolved]
  - Vomiting [Recovered/Resolved]
